FAERS Safety Report 8144570-9 (Version None)
Quarter: 2012Q1

REPORT INFORMATION
  Report Type: 
  Country: None (occurrence: None)
  Receive Date: 20120217
  Receipt Date: 20120203
  Transmission Date: 20120608
  Serious: Yes (Other)
  Sender: FDA-Public Use
  Company Number: NL-ROCHE-1019629

PATIENT
  Age: 56 Year
  Sex: Male
  Weight: 99.4 kg

DRUGS (1)
  1. VEMURAFENIB [Suspect]
     Indication: METASTATIC MALIGNANT MELANOMA
     Dosage: DATE OF LAST DOSE PRIOR TO SAE: 03/DEC/2011
     Route: 048
     Dates: start: 20111005

REACTIONS (1)
  - DUODENAL ULCER [None]
